FAERS Safety Report 9628243 (Version 2)
Quarter: 2014Q2

REPORT INFORMATION
  Report Type: Report from Study
  Country: US (occurrence: US)
  Receive Date: 20131017
  Receipt Date: 20140508
  Transmission Date: 20141212
  Serious: Yes (Hospitalization)
  Sender: FDA-Public Use
  Company Number: US-009507513-1310USA005686

PATIENT
  Age: 62 Year
  Sex: Male
  Weight: 78.73 kg

DRUGS (9)
  1. HEXADROL TABLETS [Suspect]
     Indication: PLASMA CELL MYELOMA
     Dosage: DAY 1, 2, 4, 5, 8, 9, 11, 12, EVERY 21 DAYS
     Route: 048
     Dates: start: 20130521, end: 20130910
  2. BORTEZOMIB [Suspect]
     Indication: PLASMA CELL MYELOMA
     Dosage: UNK
     Route: 058
     Dates: start: 20130521, end: 20130910
  3. STUDY DRUG (UNSPECIFIED) [Suspect]
     Indication: PLASMA CELL MYELOMA
     Dosage: UNK
     Dates: start: 20130521, end: 20130910
  4. PROVENTIL [Concomitant]
     Dosage: UNK
     Dates: start: 20130614
  5. NORVASC [Concomitant]
     Dosage: UNK
     Dates: start: 20130719
  6. NEURONTIN [Concomitant]
     Dosage: UNK
     Dates: start: 20130730
  7. XARELTO [Concomitant]
     Dosage: UNK
     Dates: start: 20130703
  8. HUMALOG [Concomitant]
     Dosage: UNK
     Dates: start: 20130722
  9. HYDROCODONE [Concomitant]
     Dosage: UNK
     Dates: start: 20130506

REACTIONS (2)
  - Troponin increased [Recovered/Resolved]
  - Chronic obstructive pulmonary disease [Recovered/Resolved]
